FAERS Safety Report 8304873-1 (Version None)
Quarter: 2012Q2

REPORT INFORMATION
  Report Type: 
  Country: None (occurrence: None)
  Receive Date: 20120423
  Receipt Date: 20120410
  Transmission Date: 20120825
  Serious: Yes (Hospitalization)
  Sender: FDA-Public Use
  Company Number: BR-ROCHE-1058403

PATIENT
  Sex: Female
  Weight: 70 kg

DRUGS (2)
  1. ACTEMRA [Suspect]
     Indication: RHEUMATOID ARTHRITIS
     Dosage: INTERRUPTED, RECEIVED MEDICATION FROM SEP 09 TO JAN 12
     Dates: start: 20090901, end: 20120101
  2. CALCIUM [Concomitant]

REACTIONS (1)
  - TENDON DISORDER [None]
